FAERS Safety Report 7082614-6 (Version None)
Quarter: 2010Q4

REPORT INFORMATION
  Report Type: 
  Country: None (occurrence: None)
  Receive Date: 20101104
  Receipt Date: 20101026
  Transmission Date: 20110411
  Serious: Yes (Other)
  Sender: FDA-Public Use
  Company Number: US-JNJFOC-20100702923

PATIENT
  Sex: Female

DRUGS (1)
  1. LEVAQUIN [Suspect]
     Indication: DYSURIA
     Route: 065

REACTIONS (4)
  - JOINT SPRAIN [None]
  - MUSCLE INJURY [None]
  - TENDON RUPTURE [None]
  - TENOSYNOVITIS [None]
